FAERS Safety Report 4352428-6 (Version None)
Quarter: 2004Q2

REPORT INFORMATION
  Report Type: 
  Country: None (occurrence: None)
  Receive Date: 20040428
  Receipt Date: 20040421
  Transmission Date: 20050107
  Serious: No
  Sender: FDA-Public Use
  Company Number: 04H-083-0258305-00

PATIENT
  Sex: 0

DRUGS (4)
  1. LEUCOVORIN CALCIUM [Suspect]
     Indication: CHEMOTHERAPY
     Dosage: 100 MG/M2, 1 IN 1 WK, INTRAVENOUS
     Route: 042
  2. FLUOROURACIL [Suspect]
     Indication: CHEMOTHERAPY
     Dosage: 2100 MG/M2 NOT REPORTED, INTRAVENOUS
     Route: 042
  3. OXALIPLATIN [Suspect]
     Indication: CHEMOTHERAPY
     Dosage: 50 MG/M2, NOT REPORTED, INTRAVENOUS
     Route: 042
  4. 5 HT3 [Concomitant]

REACTIONS (2)
  - DIARRHOEA [None]
  - PALMAR-PLANTAR ERYTHRODYSAESTHESIA SYNDROME [None]
